FAERS Safety Report 15709550 (Version 1)
Quarter: 2018Q4

REPORT INFORMATION
  Report Type: Spontaneous
  Country: US (occurrence: US)
  Receive Date: 20181211
  Receipt Date: 20181211
  Transmission Date: 20190205
  Serious: No
  Sender: FDA-Public Use
  Company Number: US-SUNOVION-2018SUN004714

PATIENT

DRUGS (1)
  1. LEVALBUTEROL TARTRATE. [Suspect]
     Active Substance: LEVALBUTEROL TARTRATE
     Indication: COUGH
     Dosage: UNK
     Route: 055

REACTIONS (3)
  - Drug ineffective for unapproved indication [Not Recovered/Not Resolved]
  - Cough [Not Recovered/Not Resolved]
  - Off label use [Unknown]
